FAERS Safety Report 6674639-7 (Version None)
Quarter: 2010Q2

REPORT INFORMATION
  Report Type: 
  Country: None (occurrence: None)
  Receive Date: 20100409
  Receipt Date: 20100330
  Transmission Date: 20101027
  Serious: Yes (Hospitalization, Other)
  Sender: FDA-Public Use
  Company Number: GB-PFIZER INC-2010040137

PATIENT
  Age: 27 Year
  Sex: Male
  Weight: 87 kg

DRUGS (2)
  1. CHAMPIX [Suspect]
     Indication: SMOKING CESSATION THERAPY
     Dosage: 1 MG, 2X/DAY
     Route: 048
     Dates: start: 20100208, end: 20100218
  2. SALBUTAMOL [Concomitant]
     Indication: ASTHMA
     Dosage: 2 DF, AS NEEDED

REACTIONS (3)
  - CHEST PAIN [None]
  - NON-CARDIAC CHEST PAIN [None]
  - PLEURITIC PAIN [None]
